FAERS Safety Report 5124326-1 (Version None)
Quarter: 2006Q4

REPORT INFORMATION
  Report Type: 
  Country: None (occurrence: None)
  Receive Date: 20060816
  Receipt Date: 20060520
  Transmission Date: 20070319
  Serious: No
  Sender: FDA-Public Use
  Company Number: US200605005171

PATIENT
  Age: 60 Year
  Sex: Male

DRUGS (3)
  1. CIALIS [Suspect]
     Indication: ERECTILE DYSFUNCTION
     Dosage: 20 MG
     Route: 065
     Dates: start: 20040101
  2. SILDENAFIL CITRATE [Concomitant]
  3. IBUPROFEN [Concomitant]

REACTIONS (1)
  - BACK PAIN [None]
